FAERS Safety Report 14780383 (Version 1)
Quarter: 2018Q2

REPORT INFORMATION
  Report Type: Not Available
  Country: US (occurrence: US)
  Receive Date: 20180419
  Receipt Date: 20180419
  Transmission Date: 20180711
  Serious: No
  Sender: FDA-Public Use
  Company Number: US-NEUROCRINE BIOSCIENCES INC.-2018NBI00526

PATIENT
  Sex: Male
  Weight: 98.97 kg

DRUGS (2)
  1. INGREZZA [Suspect]
     Active Substance: VALBENAZINE
     Route: 048
     Dates: start: 20180203, end: 20180212
  2. INGREZZA [Suspect]
     Active Substance: VALBENAZINE
     Indication: TARDIVE DYSKINESIA
     Route: 048
     Dates: start: 20180127, end: 20180202

REACTIONS (4)
  - Dysuria [Unknown]
  - Kidney infection [Unknown]
  - Fatigue [Unknown]
  - Dermatitis allergic [Unknown]
